FAERS Safety Report 26001026 (Version 1)
Quarter: 2025Q4

REPORT INFORMATION
  Report Type: Spontaneous
  Country: US (occurrence: None)
  Receive Date: 20251105
  Receipt Date: 20251105
  Transmission Date: 20260118
  Serious: No
  Sender: FDA-CTU
  Company Number: None

PATIENT
  Age: 75 Year
  Sex: Female

DRUGS (1)
  1. MAVYRET [Suspect]
     Active Substance: GLECAPREVIR\PIBRENTASVIR
     Dosage: 3 TOT- TOTAL DAILY ORAL ?
     Route: 048
     Dates: start: 20251014

REACTIONS (3)
  - Depression [None]
  - Apathy [None]
  - Activities of daily living decreased [None]
